FAERS Safety Report 23548914 (Version 3)
Quarter: 2024Q3

REPORT INFORMATION
  Report Type: Spontaneous
  Country: ES (occurrence: ES)
  Receive Date: 20240221
  Receipt Date: 20240711
  Transmission Date: 20241016
  Serious: Yes (Hospitalization)
  Sender: PFIZER
  Company Number: None

PATIENT
  Age: 55 Year
  Sex: Female

DRUGS (3)
  1. TRASTUZUMAB [Suspect]
     Active Substance: TRASTUZUMAB
     Indication: Breast cancer stage IV
     Dosage: UNK
     Route: 048
     Dates: start: 20231103, end: 20231115
  2. TUKYSA [Suspect]
     Active Substance: TUCATINIB
     Indication: Breast cancer stage IV
     Dosage: UNK
     Route: 048
     Dates: start: 20231103, end: 20231115
  3. CAPECITABINE [Suspect]
     Active Substance: CAPECITABINE
     Indication: Breast cancer stage IV
     Dosage: UNK
     Route: 048
     Dates: start: 20231103, end: 20231115

REACTIONS (4)
  - Hyperbilirubinaemia [Recovered/Resolved]
  - Coagulation factor decreased [Recovered/Resolved]
  - Hepatocellular injury [Recovered/Resolved]
  - Off label use [Unknown]

NARRATIVE: CASE EVENT DATE: 20231103
